FAERS Safety Report 15795816 (Version 2)
Quarter: 2019Q1

REPORT INFORMATION
  Report Type: Spontaneous
  Country: US (occurrence: US)
  Receive Date: 20190107
  Receipt Date: 20190222
  Transmission Date: 20190417
  Serious: No
  Sender: FDA-Public Use
  Company Number: US-AMGEN-USASP2018184087

PATIENT
  Sex: Female

DRUGS (2)
  1. HCG [Concomitant]
     Active Substance: GONADOTROPHIN, CHORIONIC
     Dosage: 10000 IU, UNK
  2. NEUPOGEN [Suspect]
     Active Substance: FILGRASTIM
     Indication: ENDOMETRIAL HYPOPLASIA
     Dosage: 300 MUG/ML, UNK (30MU APPROXIMATELY 6-12 H BEFORE HCG)
     Route: 015

REACTIONS (3)
  - Incorrect route of product administration [Unknown]
  - Maternal exposure before pregnancy [Unknown]
  - Off label use [Unknown]
